FAERS Safety Report 20850495 (Version 2)
Quarter: 2022Q2

REPORT INFORMATION
  Report Type: Spontaneous
  Country: US (occurrence: US)
  Receive Date: 20220519
  Receipt Date: 20220525
  Transmission Date: 20220721
  Serious: Yes (Other)
  Sender: FDA-Public Use
  Company Number: US-PFIZER INC-202200708800

PATIENT
  Age: 51 Year
  Sex: Male
  Weight: 139.7 kg

DRUGS (11)
  1. NORVASC [Suspect]
     Active Substance: AMLODIPINE BESYLATE
     Indication: Pulmonary arterial hypertension
     Dosage: 5 MG, 1X/DAY
     Route: 048
  2. NORVASC [Suspect]
     Active Substance: AMLODIPINE BESYLATE
     Indication: Hepatocellular carcinoma
  3. NORVASC [Suspect]
     Active Substance: AMLODIPINE BESYLATE
     Indication: Obstructive sleep apnoea syndrome
  4. NORVASC [Suspect]
     Active Substance: AMLODIPINE BESYLATE
     Indication: Chronic respiratory failure
  5. NORVASC [Suspect]
     Active Substance: AMLODIPINE BESYLATE
     Indication: Hypoxia
  6. FUROSEMIDE [Suspect]
     Active Substance: FUROSEMIDE
     Dosage: UNK
  7. METOPROLOL TARTRATE [Suspect]
     Active Substance: METOPROLOL TARTRATE
     Dosage: UNK
  8. SILDENAFIL CITRATE [Suspect]
     Active Substance: SILDENAFIL CITRATE
     Dosage: 20 MG, 3X/DAY
  9. ASPIRIN [Suspect]
     Active Substance: ASPIRIN
     Dosage: UNK
  10. LOSARTAN [Suspect]
     Active Substance: LOSARTAN
     Dosage: UNK
  11. POTASSIUM GLUCONATE [Suspect]
     Active Substance: POTASSIUM GLUCONATE
     Dosage: UNK

REACTIONS (2)
  - Dyspnoea [Unknown]
  - Poor quality sleep [Unknown]
